FAERS Safety Report 8880314 (Version 1)
Quarter: 2012Q4

REPORT INFORMATION
  Report Type: 
  Country: GB (occurrence: GB)
  Receive Date: 20121031
  Receipt Date: 20121031
  Transmission Date: 20130627
  Serious: Yes (Other)
  Sender: FDA-Public Use
  Company Number: PHHY2012GB096988

PATIENT
  Age: 72 Year
  Sex: Male
  Weight: 89 kg

DRUGS (7)
  1. SIMVASTATIN [Suspect]
     Indication: BLOOD CHOLESTEROL INCREASED
     Dosage: 40 mg (Taken at night)
     Route: 048
     Dates: start: 20120904
  2. CETIRIZINE [Concomitant]
     Indication: CARDIAC FAILURE
     Dosage: 10 mg, UNK
     Route: 048
     Dates: start: 2000
  3. FUROSEMIDE [Concomitant]
     Indication: OEDEMA
     Dosage: 80 mg, UNK
     Route: 048
     Dates: start: 20100527
  4. RAMIPRIL [Concomitant]
     Indication: OEDEMA
     Dosage: 5 mg, UNK
     Route: 048
     Dates: start: 20100701
  5. ASPIRIN [Concomitant]
     Indication: PROPHYLAXIS
     Dosage: 75 mg, UNK
     Dates: start: 20050907
  6. TRAMADOL [Concomitant]
     Indication: PAIN
     Dosage: 50 mg, UNK
     Route: 048
     Dates: start: 20120913
  7. PARACETAMOL [Concomitant]
     Indication: PAIN
     Dosage: 2 g, UNK
     Route: 048
     Dates: start: 20120913

REACTIONS (1)
  - Increased upper airway secretion [Recovered/Resolved]
